FAERS Safety Report 23081859 (Version 1)
Quarter: 2023Q4

REPORT INFORMATION
  Report Type: Spontaneous
  Country: US (occurrence: US)
  Receive Date: 20231019
  Receipt Date: 20231019
  Transmission Date: 20240109
  Serious: No
  Sender: FDA-Public Use
  Company Number: US-Ipsen Biopharmaceuticals, Inc.-2023-23876

PATIENT
  Sex: Female
  Weight: 49.89 kg

DRUGS (23)
  1. SOMATULINE DEPOT [Suspect]
     Active Substance: LANREOTIDE ACETATE
     Indication: Liver abscess
     Route: 058
  2. SOMATULINE DEPOT [Suspect]
     Active Substance: LANREOTIDE ACETATE
     Indication: Hepatic cancer
  3. SOMATULINE DEPOT [Suspect]
     Active Substance: LANREOTIDE ACETATE
     Indication: Off label use
  4. METOPROLOL TARTRATE [Concomitant]
     Active Substance: METOPROLOL TARTRATE
  5. REPAGLINIDE [Concomitant]
     Active Substance: REPAGLINIDE
  6. AMLODIPINE [Concomitant]
     Active Substance: AMLODIPINE BESYLATE
  7. POLYETHYLENE GLYCOL [Concomitant]
     Active Substance: POLYETHYLENE GLYCOL
  8. NEOMYCIN [Concomitant]
     Active Substance: NEOMYCIN
  9. POLYMYXIN [Concomitant]
     Active Substance: POLYMYXIN
  10. MOXIFLOXACIN [Concomitant]
     Active Substance: MOXIFLOXACIN
  11. TIZANIDINE [Concomitant]
     Active Substance: TIZANIDINE
  12. LEVOTHYROXINE SODIUM [Concomitant]
     Active Substance: LEVOTHYROXINE SODIUM
  13. CILOXAN [Concomitant]
     Active Substance: CIPROFLOXACIN HYDROCHLORIDE
  14. AMOXICILLIN [Concomitant]
     Active Substance: AMOXICILLIN
  15. CLAVULANIC ACID [Concomitant]
     Active Substance: CLAVULANIC ACID
  16. METFORMIN HYDROCHLORIDE [Concomitant]
     Active Substance: METFORMIN HYDROCHLORIDE
  17. METOPROLOL SUCCINATE [Concomitant]
     Active Substance: METOPROLOL SUCCINATE
  18. ERYTHROMYCIN [Concomitant]
     Active Substance: ERYTHROMYCIN
  19. LIDOCAINE [Concomitant]
     Active Substance: LIDOCAINE
  20. LOSARTAN POTASSIUM [Concomitant]
     Active Substance: LOSARTAN POTASSIUM
  21. TOBRAMYCIN [Concomitant]
     Active Substance: TOBRAMYCIN
  22. DEXAMETHASONE [Concomitant]
     Active Substance: DEXAMETHASONE
  23. ROSUVASTATIN CALCIUM [Concomitant]
     Active Substance: ROSUVASTATIN CALCIUM

REACTIONS (2)
  - Anaemia [Unknown]
  - Off label use [Unknown]
